FAERS Safety Report 18013986 (Version 1)
Quarter: 2020Q3

REPORT INFORMATION
  Report Type: Spontaneous
  Country: US (occurrence: US)
  Receive Date: 20200711
  Receipt Date: 20200711
  Transmission Date: 20201103
  Serious: Yes (Hospitalization)
  Sender: FDA-Public Use
  Company Number: None

PATIENT
  Sex: Female
  Weight: 107 kg

DRUGS (14)
  1. LOSARTAN POTASSIUM. [Suspect]
     Active Substance: LOSARTAN POTASSIUM
  2. ASPIRIN. [Suspect]
     Active Substance: ASPIRIN
  3. ATROVASTATIN [Suspect]
     Active Substance: ATORVASTATIN CALCIUM
  4. FOLIC ACID. [Suspect]
     Active Substance: FOLIC ACID
  5. INSULIN [Suspect]
     Active Substance: INSULIN NOS
  6. LISINOPRIL. [Suspect]
     Active Substance: LISINOPRIL
  7. LEVETIRACETAM. [Suspect]
     Active Substance: LEVETIRACETAM
  8. MELATONIN [Suspect]
     Active Substance: MELATONIN
  9. OMEGA 3 [Suspect]
     Active Substance: OMEGA-3 FATTY ACIDS
  10. GABAPENTIN. [Suspect]
     Active Substance: GABAPENTIN
  11. METFORMIN [Suspect]
     Active Substance: METFORMIN HYDROCHLORIDE
  12. SERTRALINE [Suspect]
     Active Substance: SERTRALINE HYDROCHLORIDE
  13. VITAMIN D2 [Suspect]
     Active Substance: ERGOCALCIFEROL
  14. VITAMIN E [Suspect]
     Active Substance: .ALPHA.-TOCOPHEROL

REACTIONS (5)
  - Breast cancer metastatic [None]
  - Metastases to central nervous system [None]
  - Metastasis [None]
  - Glioma [None]
  - Brain neoplasm [None]

NARRATIVE: CASE EVENT DATE: 20200630
